FAERS Safety Report 9423188 (Version 1)
Quarter: 2013Q3

REPORT INFORMATION
  Report Type: Report from Study
  Country: JP (occurrence: JP)
  Receive Date: 20130726
  Receipt Date: 20130726
  Transmission Date: 20140515
  Serious: Yes (Death, Hospitalization)
  Sender: FDA-Public Use
  Company Number: JP-CELGENEUS-087-21660-13073639

PATIENT
  Age: 72 Year
  Sex: Male
  Weight: 54 kg

DRUGS (9)
  1. ABRAXANE [Suspect]
     Indication: METASTATIC GASTRIC CANCER
     Route: 041
     Dates: start: 20130523, end: 20130611
  2. ABRAXANE [Suspect]
     Route: 041
     Dates: start: 20130702, end: 20130709
  3. CELECOX [Concomitant]
     Indication: PYREXIA
     Dosage: 200 MILLIGRAM
     Route: 048
     Dates: start: 20120718
  4. HIRUDOID [Concomitant]
     Indication: ONYCHOMADESIS
     Route: 061
     Dates: start: 20120724
  5. KENALOG [Concomitant]
     Indication: MUCOSAL INFLAMMATION
     Route: 048
     Dates: start: 20120803
  6. BIO-THREE [Concomitant]
     Indication: DIARRHOEA
     Route: 048
     Dates: start: 20120814
  7. PARIET [Concomitant]
     Indication: PRODUCT USED FOR UNKNOWN INDICATION
     Route: 048
     Dates: start: 20120814
  8. LASIX [Concomitant]
     Indication: OEDEMA PERIPHERAL
     Route: 048
     Dates: start: 20121106
  9. METHYCOBAL [Concomitant]
     Indication: PERIPHERAL SENSORY NEUROPATHY
     Dosage: 1500 MICROGRAM
     Route: 048
     Dates: start: 20130604

REACTIONS (2)
  - Pneumonia [Fatal]
  - Febrile neutropenia [Fatal]
